FAERS Safety Report 11184338 (Version 1)
Quarter: 2015Q2

REPORT INFORMATION
  Report Type: Spontaneous
  Country: US (occurrence: None)
  Receive Date: 20150611
  Receipt Date: 20150611
  Transmission Date: 20150821
  Serious: Yes (Hospitalization)
  Sender: FDA-Public Use
  Company Number: None

PATIENT
  Age: 16 Year
  Sex: Male
  Weight: 54.9 kg

DRUGS (6)
  1. DAUNORUBICIN [Suspect]
     Active Substance: DAUNORUBICIN
     Dates: end: 20150501
  2. VINCRISTINE SULFATE. [Suspect]
     Active Substance: VINCRISTINE SULFATE
     Dosage: 2 MG GIVEN ON 4/10, 4/17, 4/24 AND 5/1, ACCORDING TO PROTOCOL?8 MG TOTAL DOSE ADMINISTERED
     Dates: end: 20150501
  3. PREDNISONE. [Suspect]
     Active Substance: PREDNISONE
     Dosage: TOTAL DOSE 2800 MG
     Dates: end: 20150507
  4. CYTARABINE. [Suspect]
     Active Substance: CYTARABINE
     Dates: end: 20150410
  5. METHOTREXATE [Suspect]
     Active Substance: METHOTREXATE
     Dates: end: 20150508
  6. ONCASPAR [Suspect]
     Active Substance: PEGASPARGASE
     Dates: end: 20150414

REACTIONS (3)
  - Vomiting [None]
  - Anaphylactic reaction [None]
  - Neutropenia [None]

NARRATIVE: CASE EVENT DATE: 20150605
